FAERS Safety Report 6278640-7 (Version None)
Quarter: 2009Q3

REPORT INFORMATION
  Report Type: 
  Country: None (occurrence: None)
  Receive Date: 20090722
  Receipt Date: 20090428
  Transmission Date: 20100115
  Serious: No
  Sender: FDA-Public Use
  Company Number: US-BAUSCH-2009BL001974

PATIENT
  Age: 73 Year
  Sex: Male

DRUGS (2)
  1. OPCON-A [Suspect]
     Indication: HYPERSENSITIVITY
     Route: 047
     Dates: start: 20090423, end: 20090427
  2. CLARITIN /USA/ [Concomitant]
     Indication: HYPERSENSITIVITY
     Route: 048

REACTIONS (1)
  - SKIN BURNING SENSATION [None]
